FAERS Safety Report 15484475 (Version 1)
Quarter: 2018Q4

REPORT INFORMATION
  Report Type: Spontaneous
  Country: FR (occurrence: FR)
  Receive Date: 20181010
  Receipt Date: 20181010
  Transmission Date: 20190205
  Serious: Yes (Death, Congenital Anomaly)
  Sender: FDA-Public Use
  Company Number: FR-SA-2018SA277666

PATIENT
  Sex: Male
  Weight: .67 kg

DRUGS (3)
  1. FOLIC ACID. [Suspect]
     Active Substance: FOLIC ACID
     Indication: VITAMIN SUPPLEMENTATION
     Dosage: 1 DF, QD
     Route: 064
     Dates: start: 20140326, end: 201407
  2. DUPHASTON [Suspect]
     Active Substance: DYDROGESTERONE
     Indication: MENSTRUATION IRREGULAR
     Dosage: 1 DF, QCY
     Route: 064
     Dates: start: 201402, end: 201403
  3. CLOMIFENE CITRATE [Suspect]
     Active Substance: CLOMIPHENE
     Indication: OVULATION INDUCTION
     Dosage: 1 FOR 5 DAYS
     Route: 064
     Dates: start: 201403, end: 201403

REACTIONS (1)
  - Congenital hand malformation [Fatal]

NARRATIVE: CASE EVENT DATE: 20140801
